FAERS Safety Report 13632334 (Version 1)
Quarter: 2017Q2

REPORT INFORMATION
  Report Type: Spontaneous
  Country: US (occurrence: US)
  Receive Date: 20170531
  Receipt Date: 20170531
  Transmission Date: 20170830
  Serious: No
  Sender: FDA-Public Use
  Company Number: US-ASTELLAS-1454277

PATIENT
  Age: 76 Year
  Sex: Female

DRUGS (2)
  1. LIPITOR [Concomitant]
     Active Substance: ATORVASTATIN CALCIUM
     Route: 048
  2. TARCEVA [Suspect]
     Active Substance: ERLOTINIB HYDROCHLORIDE
     Indication: LUNG NEOPLASM MALIGNANT
     Dosage: THERAPY START DATE 11/AUG/2014
     Route: 048

REACTIONS (5)
  - Diarrhoea [Unknown]
  - Rash [Not Recovered/Not Resolved]
  - Eye irritation [Unknown]
  - Scleral discolouration [Unknown]
  - Diarrhoea [Not Recovered/Not Resolved]

NARRATIVE: CASE EVENT DATE: 201408
